FAERS Safety Report 5233421-8 (Version None)
Quarter: 2007Q1

REPORT INFORMATION
  Report Type: 
  Country: None (occurrence: None)
  Receive Date: 20070206
  Receipt Date: 20070201
  Transmission Date: 20070707
  Serious: Yes (Death)
  Sender: FDA-Public Use
  Company Number: FLX20070002

PATIENT
  Age: 45 Year
  Sex: Male
  Weight: 57 kg

DRUGS (4)
  1. FLUOXETINE [Suspect]
  2. COCAINE UNK UNKNOWN [Suspect]
     Dosage: UNK UNK IV
     Route: 042
  3. MIRIJUANA UNK UNKNOWN [Suspect]
  4. BUPRENORPHINE HCL [Suspect]

REACTIONS (3)
  - DRUG ABUSER [None]
  - DRUG INTERACTION POTENTIATION [None]
  - MULTIPLE DRUG OVERDOSE [None]
